FAERS Safety Report 4677367-2 (Version None)
Quarter: 2005Q2

REPORT INFORMATION
  Report Type: 
  Country: None (occurrence: None)
  Receive Date: 20050525
  Receipt Date: 20050525
  Transmission Date: 20051028
  Serious: No
  Sender: FDA-Public Use
  Company Number: None

PATIENT
  Sex: Female

DRUGS (2)
  1. SYNTHROID [Suspect]
     Indication: HYPOTHYROIDISM
     Dosage: 0.125MG
     Dates: start: 20030407
  2. CLIMARA [Suspect]
     Indication: MENOPAUSE
     Dosage: 0.1MG
     Dates: start: 19960101, end: 20070101

REACTIONS (4)
  - DRUG INTOLERANCE [None]
  - HOT FLUSH [None]
  - LABORATORY TEST ABNORMAL [None]
  - THERAPEUTIC RESPONSE UNEXPECTED WITH DRUG SUBSTITUTION [None]
